FAERS Safety Report 8866461 (Version 4)
Quarter: 2014Q3

REPORT INFORMATION
  Report Type: Spontaneous
  Country: US (occurrence: US)
  Receive Date: 20121025
  Receipt Date: 20140815
  Transmission Date: 20150326
  Serious: Yes (Hospitalization, Other)
  Sender: FDA-Public Use
  Company Number: US-009507513-2012SP000999

PATIENT
  Sex: Female
  Weight: 83.4 kg

DRUGS (2)
  1. NUVARING [Suspect]
     Active Substance: ETHINYL ESTRADIOL\ETONOGESTREL
     Dosage: UNK
     Route: 067
  2. NUVARING [Suspect]
     Active Substance: ETHINYL ESTRADIOL\ETONOGESTREL
     Indication: CONTRACEPTION
     Dosage: UNK
     Route: 067
     Dates: start: 200906, end: 201001

REACTIONS (15)
  - Maternal exposure before pregnancy [Unknown]
  - Ovarian cyst [Unknown]
  - Dyspnoea exertional [Unknown]
  - Asthma [Unknown]
  - Protein C decreased [Unknown]
  - Deep vein thrombosis [Recovered/Resolved]
  - Cervicitis [Unknown]
  - Fatigue [Not Recovered/Not Resolved]
  - Pulmonary embolism [Recovered/Resolved]
  - Cervical dysplasia [Unknown]
  - Embolism venous [Unknown]
  - Papilloma viral infection [Unknown]
  - Gastrooesophageal reflux disease [Unknown]
  - Protein S decreased [Unknown]
  - Hypercoagulation [Unknown]

NARRATIVE: CASE EVENT DATE: 20090617
